FAERS Safety Report 7526226-6 (Version None)
Quarter: 2011Q2

REPORT INFORMATION
  Report Type: 
  Country: None (occurrence: None)
  Receive Date: 20110606
  Receipt Date: 20110601
  Transmission Date: 20111010
  Serious: Yes (Death)
  Sender: FDA-Public Use
  Company Number: DE-BRISTOL-MYERS SQUIBB COMPANY-15802077

PATIENT

DRUGS (4)
  1. ABILIFY [Suspect]
     Route: 064
  2. ESCITALOPRAM [Suspect]
     Route: 064
  3. FOLSAN [Concomitant]
     Route: 064
  4. NEUROLEPTIC AGENT [Concomitant]
     Route: 064

REACTIONS (1)
  - INTRA-UTERINE DEATH [None]
